FAERS Safety Report 5037189-X (Version None)
Quarter: 2006Q2

REPORT INFORMATION
  Report Type: 
  Country: None (occurrence: None)
  Receive Date: 20060601
  Receipt Date: 20060206
  Transmission Date: 20061013
  Serious: No
  Sender: FDA-Public Use
  Company Number: 2006PV008197

PATIENT
  Age: 62 Year
  Sex: Male
  Weight: 91.173 kg

DRUGS (6)
  1. BYETTA [Suspect]
     Indication: DIABETES MELLITUS NON-INSULIN-DEPENDENT
     Dosage: SEE IMAGE
     Route: 058
     Dates: start: 20051215, end: 20060109
  2. BYETTA [Suspect]
     Indication: DIABETES MELLITUS NON-INSULIN-DEPENDENT
     Dosage: SEE IMAGE
     Route: 058
     Dates: start: 20060110
  3. GLIPIZIDE [Concomitant]
  4. METFORMIN [Concomitant]
  5. AVANDIA [Concomitant]
  6. ASPIRIN [Concomitant]

REACTIONS (5)
  - BLOOD GLUCOSE INCREASED [None]
  - DRUG INEFFECTIVE [None]
  - NASOPHARYNGITIS [None]
  - NAUSEA [None]
  - WEIGHT DECREASED [None]
